FAERS Safety Report 23407207 (Version 6)
Quarter: 2024Q1

REPORT INFORMATION
  Report Type: Report from Study
  Country: GB (occurrence: GB)
  Receive Date: 20240116
  Receipt Date: 20240225
  Transmission Date: 20240409
  Serious: Yes (Hospitalization)
  Sender: FDA-Public Use
  Company Number: GB-ABBVIE-5587624

PATIENT
  Sex: Female

DRUGS (5)
  1. CARBIDOPA\LEVODOPA [Suspect]
     Active Substance: CARBIDOPA\LEVODOPA
     Indication: Parkinson^s disease
     Dosage: MD: 8.0    CR: 3.7   ED: 2.3
     Route: 050
     Dates: start: 202401, end: 202401
  2. CARBIDOPA\LEVODOPA [Suspect]
     Active Substance: CARBIDOPA\LEVODOPA
     Dosage: 20MG/5MG, CR 3.6
     Route: 050
     Dates: start: 20240118
  3. CARBIDOPA\LEVODOPA [Suspect]
     Active Substance: CARBIDOPA\LEVODOPA
     Dosage: DUODOPA 20MGS/5MGS
     Route: 050
  4. NEUPRO [Concomitant]
     Active Substance: ROTIGOTINE
     Indication: Product used for unknown indication
     Dosage: PATCHES
     Dates: end: 202401
  5. STALEVO [Concomitant]
     Active Substance: CARBIDOPA\ENTACAPONE\LEVODOPA
     Indication: Product used for unknown indication

REACTIONS (23)
  - Lower respiratory tract infection [Not Recovered/Not Resolved]
  - Malaise [Unknown]
  - Constipation [Recovered/Resolved]
  - Product temperature excursion issue [Unknown]
  - Tremor [Recovered/Resolved]
  - Pneumonia [Recovering/Resolving]
  - Dyskinesia [Unknown]
  - Confusional state [Unknown]
  - Mobility decreased [Recovering/Resolving]
  - Muscular weakness [Unknown]
  - Cough [Not Recovered/Not Resolved]
  - Gastrointestinal disorder [Recovered/Resolved]
  - Fall [Unknown]
  - Underdose [Unknown]
  - General physical health deterioration [Unknown]
  - Drug ineffective [Unknown]
  - Somnolence [Unknown]
  - On and off phenomenon [Unknown]
  - Device issue [Not Recovered/Not Resolved]
  - Therapeutic product effect incomplete [Unknown]
  - Cognitive disorder [Not Recovered/Not Resolved]
  - Neck injury [Unknown]
  - Tremor [Not Recovered/Not Resolved]

NARRATIVE: CASE EVENT DATE: 20240127
